FAERS Safety Report 4730154-9 (Version None)
Quarter: 2005Q3

REPORT INFORMATION
  Report Type: 
  Country: None (occurrence: None)
  Receive Date: 20050728
  Receipt Date: 20050718
  Transmission Date: 20060218
  Serious: Yes (Death, Hospitalization)
  Sender: FDA-Public Use
  Company Number: 2005102342

PATIENT
  Age: 48 Year
  Sex: Female
  Weight: 90 kg

DRUGS (4)
  1. ATORVASTATIN CALCIUM [Suspect]
     Indication: ILL-DEFINED DISORDER
     Dosage: 10 MG (1 IN 1 D), ORAL
     Route: 048
     Dates: end: 20050315
  2. PANTOPRAZOLE SODIUM [Suspect]
     Indication: ILL-DEFINED DISORDER
     Dosage: 20 MG (1 IN 1 D), ORAL
     Route: 048
     Dates: end: 20050315
  3. LYTOS (CLODRONATE DISODIUM) [Suspect]
     Indication: ILL-DEFINED DISORDER
     Dosage: 2 DOSE FORMS (1 IN 1 D), ORAL
     Route: 048
     Dates: end: 20050315
  4. ANASTROZOLE (ANASTROZOLE) [Suspect]
     Indication: ILL-DEFINED DISORDER
     Dosage: 1 DOSE FORMS (1 IN 1 D), ORAL
     Route: 048
     Dates: start: 20050115, end: 20050315

REACTIONS (11)
  - ASCITES [None]
  - BLOOD GLUCOSE INCREASED [None]
  - BLOOD PRESSURE DECREASED [None]
  - HEPATIC ENCEPHALOPATHY [None]
  - HEPATORENAL SYNDROME [None]
  - HYPERKALAEMIA [None]
  - HYPERPROTEINAEMIA [None]
  - HYPONATRAEMIA [None]
  - METASTASES TO LIVER [None]
  - PLEURAL EFFUSION [None]
  - PULMONARY EMBOLISM [None]
